FAERS Safety Report 15200556 (Version 6)
Quarter: 2018Q4

REPORT INFORMATION
  Report Type: Spontaneous
  Country: US (occurrence: US)
  Receive Date: 20180726
  Receipt Date: 20181206
  Transmission Date: 20190204
  Serious: Yes (Other)
  Sender: FDA-Public Use
  Company Number: US-ASTRAZENECA-2018SE94536

PATIENT
  Age: 806 Month
  Sex: Female
  Weight: 91.6 kg

DRUGS (8)
  1. FASLODEX [Suspect]
     Active Substance: FULVESTRANT
     Indication: BREAST CANCER METASTATIC
     Dosage: 250 MG ONE INJECTION IN EACH BUTTOCK FOR 12 MONTHS
     Route: 030
     Dates: start: 20170509, end: 20180706
  2. IBRANCE [Suspect]
     Active Substance: PALBOCICLIB
     Dosage: THREE WEEKS ON AND ONE WEEK OFF
     Route: 048
  3. SYNTHROID [Concomitant]
     Active Substance: LEVOTHYROXINE SODIUM
     Dosage: 175 UG
     Route: 048
  4. ATORVASTATIN [Concomitant]
     Active Substance: ATORVASTATIN
  5. FASLODEX [Suspect]
     Active Substance: FULVESTRANT
     Indication: BREAST CANCER METASTATIC
     Route: 030
  6. AMITIZA [Concomitant]
     Active Substance: LUBIPROSTONE
     Route: 048
  7. BUDESONIDE. [Suspect]
     Active Substance: BUDESONIDE
     Route: 048
  8. SILVADENE [Concomitant]
     Active Substance: SILVER SULFADIAZINE

REACTIONS (9)
  - Dermatitis [Recovered/Resolved]
  - Wrong technique in product usage process [Unknown]
  - Breast cancer metastatic [Unknown]
  - Injection site necrosis [Not Recovered/Not Resolved]
  - Injection site scar [Unknown]
  - Dizziness [Unknown]
  - Injection site pain [Not Recovered/Not Resolved]
  - Skin ulcer [Unknown]
  - Injection site infection [Unknown]

NARRATIVE: CASE EVENT DATE: 201807
